FAERS Safety Report 24959057 (Version 1)
Quarter: 2025Q1

REPORT INFORMATION
  Report Type: Spontaneous
  Country: CA (occurrence: CA)
  Receive Date: 20250212
  Receipt Date: 20250212
  Transmission Date: 20250409
  Serious: Yes (Hospitalization)
  Sender: ROCHE
  Company Number: CA-002147023-NVSC2025CA020749

PATIENT
  Age: 80 Year
  Sex: Female

DRUGS (1)
  1. OMALIZUMAB [Suspect]
     Active Substance: OMALIZUMAB
     Indication: Asthma
     Route: 050

REACTIONS (4)
  - Anaemia postoperative [Unknown]
  - Arthritis [Unknown]
  - Asthenia [Unknown]
  - Fatigue [Unknown]
